FAERS Safety Report 11793058 (Version 1)
Quarter: 2015Q4

REPORT INFORMATION
  Report Type: Spontaneous
  Country: FR (occurrence: FR)
  Receive Date: 20151202
  Receipt Date: 20151202
  Transmission Date: 20160305
  Serious: Yes (Other)
  Sender: FDA-Public Use
  Company Number: FR-WATSON-2015-25192

PATIENT
  Sex: Male

DRUGS (1)
  1. TRIPTORELIN (UNKNOWN) [Suspect]
     Active Substance: TRIPTORELIN
     Indication: PROSTATE CANCER
     Dosage: UNK UNK, UNKNOWN
     Route: 065
     Dates: start: 2008, end: 2012

REACTIONS (2)
  - Osteoporosis [Not Recovered/Not Resolved]
  - Osteoporotic fracture [Unknown]

NARRATIVE: CASE EVENT DATE: 2011
